FAERS Safety Report 25942350 (Version 1)
Quarter: 2025Q4

REPORT INFORMATION
  Report Type: Report from Study
  Country: EU (occurrence: EU)
  Receive Date: 20251021
  Receipt Date: 20251021
  Transmission Date: 20260118
  Serious: Yes (Other)
  Sender: ABBVIE
  Company Number: EU-ABBVIE-6509475

PATIENT
  Age: 76 Year
  Sex: Male

DRUGS (2)
  1. FOSCARBIDOPA\FOSLEVODOPA [Suspect]
     Active Substance: FOSCARBIDOPA\FOSLEVODOPA
     Indication: Parkinson^s disease
     Route: 058
     Dates: start: 20240528
  2. FOSCARBIDOPA\FOSLEVODOPA [Suspect]
     Active Substance: FOSCARBIDOPA\FOSLEVODOPA
     Dosage: CRN: 0.46 ML/H; CR: 0.72 ML/H, ED: 0.20 ML
     Route: 058
     Dates: start: 202506

REACTIONS (3)
  - Renal failure [Unknown]
  - Bladder catheter permanent [Unknown]
  - Fall [Unknown]

NARRATIVE: CASE EVENT DATE: 20250101
